FAERS Safety Report 11880275 (Version 4)
Quarter: 2020Q2

REPORT INFORMATION
  Report Type: Spontaneous
  Country: US (occurrence: US)
  Receive Date: 20151230
  Receipt Date: 20200611
  Transmission Date: 20200713
  Serious: Yes (Hospitalization, Other)
  Sender: FDA-Public Use
  Company Number: US-BIOMARINAP-US-2015-108532

PATIENT
  Age: 8 Year
  Sex: Male

DRUGS (2)
  1. ALDURAZYME [Suspect]
     Active Substance: LARONIDASE
     Indication: MUCOPOLYSACCHARIDOSIS I
     Dosage: 11.6 MILLIGRAM, QW
     Route: 041
     Dates: start: 20080923
  2. ALDURAZYME [Suspect]
     Active Substance: LARONIDASE
     Dosage: 14.5 MILLIGRAM, QW
     Route: 042
     Dates: start: 20091215

REACTIONS (8)
  - Disease progression [Not Recovered/Not Resolved]
  - Hospitalisation [Not Recovered/Not Resolved]
  - Increased viscosity of bronchial secretion [Unknown]
  - Dyspnoea [Unknown]
  - Vascular device infection [Not Recovered/Not Resolved]
  - Product storage error [Unknown]
  - Vein disorder [Unknown]
  - Sputum discoloured [Unknown]

NARRATIVE: CASE EVENT DATE: 201510
